FAERS Safety Report 9470736 (Version 2)
Quarter: 2013Q3

REPORT INFORMATION
  Report Type: Spontaneous
  Country: US (occurrence: US)
  Receive Date: 20130822
  Receipt Date: 20130919
  Transmission Date: 20140515
  Serious: No
  Sender: FDA-Public Use
  Company Number: US-B.I. PHARMACEUTICALS,INC./RIDGEFIELD-2013-BI-24858BP

PATIENT
  Sex: Male
  Weight: 60 kg

DRUGS (7)
  1. COMBIVENT [Suspect]
     Indication: CHRONIC OBSTRUCTIVE PULMONARY DISEASE
     Dosage: STRENGTH: 18 MCG / 103 MCG;
     Route: 055
     Dates: start: 199610
  2. COMBIVENT [Suspect]
     Dosage: 8 PUF
     Route: 055
     Dates: start: 20120504, end: 20130122
  3. COMBIVENT [Suspect]
     Indication: CHRONIC OBSTRUCTIVE PULMONARY DISEASE
     Dosage: STRENGTH: 20 MCG / 100 MCG; DAILY DOSE: 80 MCG/400 MCG
     Route: 055
  4. COMBIVENT [Suspect]
     Dosage: 4 PUF
     Route: 055
     Dates: start: 20130122, end: 20130813
  5. ALBUTEROL SULFATE [Concomitant]
     Indication: INHALATION THERAPY
     Dosage: (INHALATION AEROSOL)
     Route: 055
  6. ALBUTEROL SULFATE [Concomitant]
     Indication: DEVICE THERAPY
     Dosage: (INHALATION AEROSOL)
     Route: 055
  7. SYMBICORT [Concomitant]
     Dosage: (INHALATION AEROSOL) STRENGTH: 4.5; DAILY DOSE: 9.0
     Route: 055

REACTIONS (3)
  - Dyspnoea [Recovered/Resolved]
  - Drug ineffective [Not Recovered/Not Resolved]
  - Overdose [Recovered/Resolved]
